FAERS Safety Report 7555541-5 (Version None)
Quarter: 2011Q2

REPORT INFORMATION
  Report Type: 
  Country: None (occurrence: None)
  Receive Date: 20110617
  Receipt Date: 20030630
  Transmission Date: 20111010
  Serious: Yes (Other)
  Sender: FDA-Public Use
  Company Number: PHHO2003JP08436

PATIENT
  Age: 60 Year
  Sex: Male

DRUGS (10)
  1. ASPIRIN [Concomitant]
     Dosage: UNK
     Dates: start: 20030506
  2. PLETAL [Concomitant]
     Dosage: UNK
  3. MARZULENE [Concomitant]
     Dosage: UNK
  4. VOLTAREN [Suspect]
     Dosage: UNK
     Dates: start: 20030325, end: 20030331
  5. PINDOLOL [Suspect]
     Dosage: UNK
  6. ZADITEN [Suspect]
     Dosage: UNK
  7. PRAVASTATIN SODIUM [Concomitant]
     Indication: HYPERCHOLESTEROLAEMIA
     Dosage: 20 MG, UNK
     Dates: start: 19990510, end: 20030616
  8. ADALAT [Concomitant]
     Dosage: UNK
  9. URINORM [Concomitant]
     Dosage: UNK
  10. RIZE [Concomitant]
     Dosage: UNK

REACTIONS (1)
  - CEREBRAL ARTERY OCCLUSION [None]
